FAERS Safety Report 17770930 (Version 1)
Quarter: 2020Q2

REPORT INFORMATION
  Report Type: Report from Study
  Country: CO (occurrence: CO)
  Receive Date: 20200512
  Receipt Date: 20200512
  Transmission Date: 20200714
  Serious: Yes (Death, Hospitalization)
  Sender: FDA-Public Use
  Company Number: NVSC2019CO090991

PATIENT
  Sex: Female

DRUGS (2)
  1. JADENU [Suspect]
     Active Substance: DEFERASIROX
     Indication: BLOOD IRON INCREASED
  2. JADENU [Suspect]
     Active Substance: DEFERASIROX
     Indication: SYSTEMIC LUPUS ERYTHEMATOSUS
     Dosage: 2 DF, OT
     Route: 065

REACTIONS (3)
  - Death [Fatal]
  - Paralysis [Unknown]
  - Product use in unapproved indication [Unknown]
